FAERS Safety Report 17010563 (Version 1)
Quarter: 2019Q4

REPORT INFORMATION
  Report Type: Spontaneous
  Country: US (occurrence: US)
  Receive Date: 20191107
  Receipt Date: 20191107
  Transmission Date: 20200122
  Serious: No
  Sender: FDA-Public Use
  Company Number: None

PATIENT
  Sex: Female

DRUGS (2)
  1. PREDNISONE 50MG [Suspect]
     Active Substance: PREDNISONE
  2. PREDNISONE 20MG [Suspect]
     Active Substance: PREDNISONE

REACTIONS (1)
  - Therapy non-responder [None]
